FAERS Safety Report 7145420-X (Version None)
Quarter: 2010Q4

REPORT INFORMATION
  Report Type: 
  Country: None (occurrence: None)
  Receive Date: 20101208
  Receipt Date: 20101201
  Transmission Date: 20110411
  Serious: Yes (Other)
  Sender: FDA-Public Use
  Company Number: FR-SANOFI-AVENTIS-2010SA070544

PATIENT
  Age: 75 Year
  Sex: Male
  Weight: 75 kg

DRUGS (8)
  1. MULTAQ [Suspect]
     Indication: ATRIAL FIBRILLATION
     Route: 048
     Dates: start: 20101026
  2. PREVISCAN [Suspect]
     Indication: ATRIAL FIBRILLATION
     Route: 048
     Dates: start: 20040101, end: 20070101
  3. PREVISCAN [Suspect]
     Route: 048
     Dates: start: 20101019, end: 20101115
  4. COVERSYL /FRA/ [Concomitant]
     Route: 048
     Dates: start: 20101019
  5. DIGOXINE [Concomitant]
     Route: 048
     Dates: start: 20101019
  6. DIGOXINE [Concomitant]
     Indication: ATRIAL FIBRILLATION
     Route: 048
     Dates: start: 20101019
  7. KARDEGIC [Concomitant]
     Route: 048
  8. FLECAINIDE ACETATE [Concomitant]
     Route: 048
     Dates: start: 20101001, end: 20100101

REACTIONS (2)
  - INTERNATIONAL NORMALISED RATIO INCREASED [None]
  - PROTHROMBIN TIME SHORTENED [None]
